FAERS Safety Report 5739310-4 (Version None)
Quarter: 2008Q2

REPORT INFORMATION
  Report Type: 
  Country: None (occurrence: None)
  Receive Date: 20080512
  Receipt Date: 20080512
  Transmission Date: 20081010
  Serious: Yes (Death, Hospitalization)
  Sender: FDA-Public Use
  Company Number: None

PATIENT
  Sex: Female
  Weight: 40.6 kg

DRUGS (4)
  1. FLUOROURACIL [Suspect]
     Dosage: 2909 MG
     Dates: end: 20080506
  2. BEVACIZUMAB (RHUMAB VEGF) [Suspect]
     Dosage: 203 MG
     Dates: end: 20080506
  3. IRINOTECAN HCL [Suspect]
     Dosage: 197 MG
     Dates: end: 20080506
  4. LEUCOVORIN CALCIUM [Suspect]
     Dosage: 524 MG
     Dates: end: 20080506

REACTIONS (10)
  - ACTIVITIES OF DAILY LIVING IMPAIRED [None]
  - ASTHENIA [None]
  - DYSPNOEA [None]
  - FALL [None]
  - JOINT INJURY [None]
  - MOBILITY DECREASED [None]
  - ORAL INTAKE REDUCED [None]
  - UNRESPONSIVE TO STIMULI [None]
  - WEIGHT DECREASED [None]
  - WOUND [None]
